FAERS Safety Report 6985942-5 (Version None)
Quarter: 2010Q3

REPORT INFORMATION
  Report Type: 
  Country: None (occurrence: None)
  Receive Date: 20100915
  Receipt Date: 20100902
  Transmission Date: 20110219
  Serious: Yes (Other)
  Sender: FDA-Public Use
  Company Number: US-ELI_LILLY_AND_COMPANY-US201009001158

PATIENT
  Sex: Female

DRUGS (1)
  1. HUMATROPE [Suspect]

REACTIONS (1)
  - SURGERY [None]
